FAERS Safety Report 7594283-7 (Version None)
Quarter: 2011Q3

REPORT INFORMATION
  Report Type: 
  Country: None (occurrence: None)
  Receive Date: 20110706
  Receipt Date: 20110627
  Transmission Date: 20111222
  Serious: Yes (Hospitalization, Other)
  Sender: FDA-Public Use
  Company Number: DE-ASTRAZENECA-2011SE25839

PATIENT
  Age: 47 Year
  Sex: Male
  Weight: 79 kg

DRUGS (3)
  1. SEROQUEL XR [Suspect]
     Dosage: 200-300 MG DAILY, BREAK: 25-FEB-2011
     Route: 048
     Dates: start: 20110214, end: 20110302
  2. MIRTAZAPINE [Suspect]
     Route: 048
     Dates: start: 20110214, end: 20110223
  3. LORAZEPAM [Suspect]
     Dosage: 0.5-3 MG DAILY
     Route: 048
     Dates: start: 20110214, end: 20110225

REACTIONS (1)
  - HEPATITIS ACUTE [None]
